FAERS Safety Report 11785374 (Version 1)
Quarter: 2015Q4

REPORT INFORMATION
  Report Type: Spontaneous
  Country: US (occurrence: US)
  Receive Date: 20151130
  Receipt Date: 20151130
  Transmission Date: 20160305
  Serious: No
  Sender: FDA-Public Use
  Company Number: US-JNJFOC-20151007183

PATIENT
  Age: 7 Month
  Sex: Female
  Weight: 9.07 kg

DRUGS (1)
  1. TYLENOL [Suspect]
     Active Substance: ACETAMINOPHEN
     Indication: PRODUCT USED FOR UNKNOWN INDICATION
     Route: 048
     Dates: start: 20151008, end: 20151008

REACTIONS (3)
  - Wrong technique in product usage process [Unknown]
  - Drug administered to patient of inappropriate age [Unknown]
  - Product packaging issue [Unknown]

NARRATIVE: CASE EVENT DATE: 20151008
